FAERS Safety Report 7184069-X (Version None)
Quarter: 2010Q4

REPORT INFORMATION
  Report Type: 
  Country: None (occurrence: None)
  Receive Date: 20101222
  Receipt Date: 20101209
  Transmission Date: 20110411
  Serious: Yes (Hospitalization)
  Sender: FDA-Public Use
  Company Number: PHHY2010US84461

PATIENT
  Sex: Male
  Weight: 62.4 kg

DRUGS (1)
  1. ERL 080A ERL+TAB [Suspect]
     Indication: RENAL TRANSPLANT
     Dosage: 720 MG, BID
     Route: 048
     Dates: start: 20100202

REACTIONS (5)
  - CARDIAC SARCOIDOSIS [None]
  - IMPLANTABLE DEFIBRILLATOR INSERTION [None]
  - PULMONARY OEDEMA [None]
  - SYNCOPE [None]
  - VENTRICULAR HYPOKINESIA [None]
